FAERS Safety Report 18819549 (Version 2)
Quarter: 2021Q1

REPORT INFORMATION
  Report Type: Spontaneous
  Country: US (occurrence: US)
  Receive Date: 20210201
  Receipt Date: 20210204
  Transmission Date: 20210419
  Serious: Yes (Other)
  Sender: FDA-Public Use
  Company Number: US-PFIZER INC-2019376353

PATIENT
  Age: 69 Year
  Sex: Female

DRUGS (1)
  1. LYRICA [Suspect]
     Active Substance: PREGABALIN
     Indication: PHANTOM LIMB SYNDROME
     Dosage: 450 MG, DAILY(SIG: 1 (ONE) CAPSULE AM, 2 AT NIGHT)
     Route: 048

REACTIONS (2)
  - Off label use [Unknown]
  - Drug dependence [Unknown]
